FAERS Safety Report 8248157-9 (Version None)
Quarter: 2012Q1

REPORT INFORMATION
  Report Type: 
  Country: None (occurrence: None)
  Receive Date: 20120330
  Receipt Date: 20120316
  Transmission Date: 20120608
  Serious: Yes (Hospitalization)
  Sender: FDA-Public Use
  Company Number: FR-CELGENEUS-056-21880-12022155

PATIENT
  Sex: Male

DRUGS (9)
  1. BORTEZOMIB [Suspect]
     Indication: MULTIPLE MYELOMA
     Dosage: 2.288 MILLIGRAM
     Route: 065
     Dates: start: 20111222
  2. DEXAMETHASONE [Suspect]
     Indication: MULTIPLE MYELOMA
     Dosage: 20 MILLIGRAM
     Route: 065
     Dates: start: 20111222
  3. VALACYCLOVIR HYDROCHLORIDE [Concomitant]
     Indication: PROPHYLAXIS
     Dosage: 1000 MILLIGRAM
     Route: 048
     Dates: start: 20111222
  4. BACTRIM [Concomitant]
     Indication: PROPHYLAXIS
     Route: 048
     Dates: start: 20111222
  5. REVLIMID [Suspect]
     Dosage: 25 MILLIGRAM
     Route: 048
     Dates: start: 20120214
  6. BORTEZOMIB [Suspect]
     Dosage: 2.288 MILLIGRAM
     Route: 065
     Dates: start: 20120213
  7. DEXAMETHASONE [Suspect]
     Dosage: 20 MILLIGRAM
     Route: 065
     Dates: start: 20120214
  8. AMOXICILLIN TRIHYDRATE [Concomitant]
     Route: 065
  9. REVLIMID [Suspect]
     Indication: MULTIPLE MYELOMA
     Route: 048
     Dates: start: 20111222

REACTIONS (2)
  - RHONCHI [None]
  - PYREXIA [None]
